FAERS Safety Report 24760102 (Version 1)
Quarter: 2024Q4

REPORT INFORMATION
  Report Type: Spontaneous
  Country: NL (occurrence: NL)
  Receive Date: 20241220
  Receipt Date: 20241220
  Transmission Date: 20250114
  Serious: Yes (Life-Threatening)
  Sender: BEXIMCO PHARMACEUTICALS
  Company Number: NL-BEXIMCO-2024BEX00056

PATIENT
  Age: 14 Year
  Sex: Male
  Weight: 60 kg

DRUGS (6)
  1. BACLOFEN [Suspect]
     Active Substance: BACLOFEN
     Dosage: 365.5 ?G/D (THREE BOLUSES OF 75 MCG/BOLUS PER DAY)
     Route: 037
     Dates: start: 2021
  2. BACLOFEN [Suspect]
     Active Substance: BACLOFEN
     Dosage: 5 MG
     Route: 048
  3. REMIFENTANIL [Suspect]
     Active Substance: REMIFENTANIL
     Indication: Analgesic therapy
     Dosage: UNK
     Dates: start: 2021
  4. PIRITRAMIDE [Suspect]
     Active Substance: PIRITRAMIDE
     Indication: Analgesic therapy
     Dosage: 5 MG
     Dates: start: 2021
  5. CLONAZEPAM [Concomitant]
     Active Substance: CLONAZEPAM
     Dosage: 1.5 MG
  6. GABAPENTIN [Concomitant]
     Active Substance: GABAPENTIN
     Dosage: 600 MG

REACTIONS (4)
  - Depressed level of consciousness [Recovered/Resolved]
  - Drug interaction [Unknown]
  - Respiratory depression [Recovered/Resolved]
  - Overdose [Unknown]

NARRATIVE: CASE EVENT DATE: 20210101
